FAERS Safety Report 15628985 (Version 2)
Quarter: 2020Q3

REPORT INFORMATION
  Report Type: Report from Study
  Country: CN (occurrence: CN)
  Receive Date: 20181116
  Receipt Date: 20181127
  Transmission Date: 20201105
  Serious: Yes (Death, Hospitalization)
  Sender: FDA-Public Use
  Company Number: CN-JNJFOC-20181102351

PATIENT
  Age: 48 Year
  Sex: Male
  Weight: 74 kg

DRUGS (2)
  1. DARATUMUMAB [Suspect]
     Active Substance: DARATUMUMAB
     Indication: ANGIOCENTRIC LYMPHOMA
     Route: 042
  2. DARATUMUMAB [Suspect]
     Active Substance: DARATUMUMAB
     Indication: ANGIOCENTRIC LYMPHOMA
     Route: 042
     Dates: start: 20181024

REACTIONS (2)
  - Septic shock [Recovered/Resolved]
  - Death [Fatal]

NARRATIVE: CASE EVENT DATE: 20181029
